FAERS Safety Report 18077252 (Version 1)
Quarter: 2020Q3

REPORT INFORMATION
  Report Type: Spontaneous
  Country: GB (occurrence: GB)
  Receive Date: 20200728
  Receipt Date: 20200728
  Transmission Date: 20201103
  Serious: Yes (Other)
  Sender: FDA-Public Use
  Company Number: GB-BIOGEN-2020BI00901993

PATIENT
  Age: 57 Year
  Sex: Female
  Weight: 80 kg

DRUGS (1)
  1. TYSABRI [Suspect]
     Active Substance: NATALIZUMAB
     Indication: MULTIPLE SCLEROSIS
     Route: 042
     Dates: start: 20150105, end: 20200501

REACTIONS (3)
  - Metastases to liver [Unknown]
  - Malignant neoplasm of unknown primary site [Unknown]
  - Metastases to lung [Unknown]

NARRATIVE: CASE EVENT DATE: 20200501
